FAERS Safety Report 15986948 (Version 1)
Quarter: 2019Q1

REPORT INFORMATION
  Report Type: Spontaneous
  Country: US (occurrence: US)
  Receive Date: 20190220
  Receipt Date: 20190220
  Transmission Date: 20190418
  Serious: Yes (Other)
  Sender: FDA-Public Use
  Company Number: US-TEVA-2019-US-1015080

PATIENT
  Sex: Female
  Weight: 117.93 kg

DRUGS (1)
  1. VENLAFAXINE HCL 75 MG TABLETS [Suspect]
     Active Substance: VENLAFAXINE HYDROCHLORIDE
     Dosage: 300 MILLIGRAM DAILY; 4 PILLS A DAY

REACTIONS (3)
  - Inappropriate schedule of product administration [Unknown]
  - Suicidal ideation [Unknown]
  - Depression [Unknown]
